FAERS Safety Report 5388636-5 (Version None)
Quarter: 2007Q3

REPORT INFORMATION
  Report Type: 
  Country: None (occurrence: None)
  Receive Date: 20070716
  Receipt Date: 20070709
  Transmission Date: 20080115
  Serious: Yes (Hospitalization, Other)
  Sender: FDA-Public Use
  Company Number: US-BOEHRINGER INGELHEIM PHARMACEUTICALS, INC.-2007-BP-07490BP

PATIENT
  Age: 81 Year
  Sex: Male

DRUGS (5)
  1. FLOMAX [Suspect]
     Indication: BENIGN PROSTATIC HYPERPLASIA
     Route: 048
     Dates: start: 20050101
  2. CILOSTAZOL [Concomitant]
  3. DIOVAN [Concomitant]
  4. CASODEX [Concomitant]
  5. LUPRON [Concomitant]

REACTIONS (4)
  - POLLAKIURIA [None]
  - PROSTATE CANCER [None]
  - RENAL CELL CARCINOMA STAGE UNSPECIFIED [None]
  - SUBDURAL HAEMATOMA [None]
